FAERS Safety Report 23992882 (Version 1)
Quarter: 2024Q2

REPORT INFORMATION
  Report Type: Spontaneous
  Country: CN (occurrence: CN)
  Receive Date: 20240620
  Receipt Date: 20240620
  Transmission Date: 20240715
  Serious: Yes (Hospitalization)
  Sender: FDA-Public Use
  Company Number: CN-CHEPLA-2024007623

PATIENT
  Age: 53 Year
  Sex: Female
  Weight: 50.5 kg

DRUGS (5)
  1. CAPECITABINE [Suspect]
     Active Substance: CAPECITABINE
     Indication: Colon cancer
     Dosage: APPROVAL NO. GYZZ H20073024/CAPECITABINE 1.5G IN THE MORNING AND 1.0G IN THE EVENING AND ORAL D1-14
     Route: 048
     Dates: start: 20240528, end: 20240605
  2. CAPECITABINE [Suspect]
     Active Substance: CAPECITABINE
     Indication: Colon cancer
  3. OXALIPLATIN [Suspect]
     Active Substance: OXALIPLATIN
     Indication: Colon cancer
     Dosage: APPROVAL NO. GYZZ H20213312, IV DRIP?DAILY DOSE: 180 MILLIGRAM
     Route: 042
     Dates: start: 20240528, end: 20240528
  4. OXALIPLATIN [Suspect]
     Active Substance: OXALIPLATIN
     Indication: Colon cancer
  5. DEXTROSE [Concomitant]
     Active Substance: DEXTROSE\DEXTROSE MONOHYDRATE
     Dosage: INTRAVENOUS DRIP?DAILY DOSE: 500 MILLILITRE
     Route: 042
     Dates: start: 20240528, end: 20240528

REACTIONS (5)
  - Thrombocytopenia [Recovering/Resolving]
  - Haemorrhage subcutaneous [Recovering/Resolving]
  - Petechiae [Recovered/Resolved]
  - Ecchymosis [Recovered/Resolved]
  - Hepatic function abnormal [Unknown]

NARRATIVE: CASE EVENT DATE: 20240605
